FAERS Safety Report 19541652 (Version 1)
Quarter: 2021Q3

REPORT INFORMATION
  Report Type: Spontaneous
  Country: US (occurrence: US)
  Receive Date: 20210714
  Receipt Date: 20210714
  Transmission Date: 20211014
  Serious: Yes (Hospitalization)
  Sender: FDA-Public Use
  Company Number: US-ROCHE-2867328

PATIENT
  Age: 73 Year
  Sex: Male
  Weight: 108.05 kg

DRUGS (15)
  1. TRAMADOL HCL [Concomitant]
     Active Substance: TRAMADOL HYDROCHLORIDE
     Route: 048
  2. ASPIRIN 81 [Concomitant]
     Active Substance: ASPIRIN
     Route: 048
  3. OMEPRAZOLE. [Concomitant]
     Active Substance: OMEPRAZOLE
     Route: 048
  4. ERYTHROMYCIN. [Concomitant]
     Active Substance: ERYTHROMYCIN
     Route: 047
  5. LISINOPRIL. [Concomitant]
     Active Substance: LISINOPRIL
     Route: 048
  6. SYMBICORT [Concomitant]
     Active Substance: BUDESONIDE\FORMOTEROL FUMARATE DIHYDRATE
     Dosage: 80?4.5
  7. KLONOPIN [Suspect]
     Active Substance: CLONAZEPAM
     Indication: PRODUCT USED FOR UNKNOWN INDICATION
     Route: 048
  8. SERTRALINE HCL [Concomitant]
     Active Substance: SERTRALINE HYDROCHLORIDE
     Route: 048
  9. METFORMIN HYDROCHLORIDE. [Suspect]
     Active Substance: METFORMIN HYDROCHLORIDE
     Indication: PRODUCT USED FOR UNKNOWN INDICATION
     Route: 048
  10. INCRUSE ELLIPTA [Concomitant]
     Active Substance: UMECLIDINIUM BROMIDE
     Dosage: 62.5
  11. ATORVASTATIN CALCIUM. [Concomitant]
     Active Substance: ATORVASTATIN CALCIUM
     Route: 048
  12. MAPAP [Concomitant]
     Active Substance: ACETAMINOPHEN
     Dosage: 30 MINUTES PRIOR TO INFUSION
     Route: 048
  13. VITAMIN C [Concomitant]
     Active Substance: ASCORBIC ACID
     Route: 048
  14. RITUXAN [Suspect]
     Active Substance: RITUXIMAB
     Indication: RHEUMATOID ARTHRITIS
     Dosage: RATE ? 50ML/HR?200ML/HR
     Route: 041
  15. SOLU?MEDROL [Concomitant]
     Active Substance: METHYLPREDNISOLONE SODIUM SUCCINATE
     Dosage: 30 MIN PRIOR TO INFUSION
     Route: 042

REACTIONS (6)
  - Oropharyngeal pain [Recovered/Resolved]
  - Swelling face [Recovered/Resolved]
  - Dyspnoea [Recovered/Resolved]
  - Drug hypersensitivity [Recovered/Resolved]
  - Chest discomfort [Recovered/Resolved]
  - Renal disorder [Recovered/Resolved]

NARRATIVE: CASE EVENT DATE: 20210629
